FAERS Safety Report 6635400-2 (Version None)
Quarter: 2010Q1

REPORT INFORMATION
  Report Type: 
  Country: None (occurrence: None)
  Receive Date: 20100315
  Receipt Date: 20090323
  Transmission Date: 20100710
  Serious: No
  Sender: FDA-Public Use
  Company Number: US-ABBOTT-09P-163-0564461-00

PATIENT
  Sex: Female

DRUGS (6)
  1. DEPAKOTE [Suspect]
     Indication: BIPOLAR DISORDER
     Route: 048
     Dates: start: 20040101, end: 20040101
  2. DEPAKOTE [Suspect]
     Route: 048
     Dates: start: 20070101, end: 20090323
  3. DEPAKOTE [Suspect]
     Route: 048
     Dates: start: 20070101, end: 20090323
  4. DEPAKOTE [Suspect]
     Route: 048
     Dates: start: 20090324
  5. PROZAC [Concomitant]
     Indication: DRUG USE FOR UNKNOWN INDICATION
  6. SEROQUEL [Concomitant]
     Indication: DRUG USE FOR UNKNOWN INDICATION
     Route: 048

REACTIONS (2)
  - DRUG LEVEL INCREASED [None]
  - NYSTAGMUS [None]
